FAERS Safety Report 24609493 (Version 5)
Quarter: 2025Q3

REPORT INFORMATION
  Report Type: Other
  Country: GB (occurrence: GB)
  Receive Date: 20241112
  Receipt Date: 20250930
  Transmission Date: 20251020
  Serious: Yes (Hospitalization, Other)
  Sender: GLENMARK
  Company Number: GB-SA-2017SA010664

PATIENT

DRUGS (60)
  1. OMEPRAZOLE [Interacting]
     Active Substance: OMEPRAZOLE
     Indication: Dyspepsia
     Route: 048
     Dates: start: 20140116
  2. OMEPRAZOLE [Interacting]
     Active Substance: OMEPRAZOLE
     Indication: Duodenal ulcer
  3. OMEPRAZOLE [Interacting]
     Active Substance: OMEPRAZOLE
     Indication: Duodenal ulcer
     Route: 065
     Dates: start: 20110616
  4. OMEPRAZOLE [Interacting]
     Active Substance: OMEPRAZOLE
     Indication: Dyspepsia
     Route: 065
     Dates: start: 20110616
  5. OMEPRAZOLE [Interacting]
     Active Substance: OMEPRAZOLE
     Indication: Pain in extremity
  6. RAMIPRIL [Interacting]
     Active Substance: RAMIPRIL
     Indication: Cardiac failure
     Dosage: 1.25 MILLIGRAM, QD
     Route: 048
     Dates: start: 20130813, end: 20160629
  7. RAMIPRIL [Interacting]
     Active Substance: RAMIPRIL
     Dosage: 1 MILLIGRAM, QD
     Route: 048
     Dates: start: 20130813
  8. CARVEDILOL [Interacting]
     Active Substance: CARVEDILOL
     Indication: Angina pectoris
     Dosage: 50 MILLIGRAM, QD (25MG, BID))
     Route: 065
     Dates: start: 20110616
  9. CARVEDILOL [Interacting]
     Active Substance: CARVEDILOL
     Dosage: 50 MILLIGRAM, QD (25MG, BID))
     Route: 065
     Dates: start: 20110616
  10. CARVEDILOL [Interacting]
     Active Substance: CARVEDILOL
     Dosage: 50 MILLIGRAM, QD (25MG, BID))
     Route: 065
     Dates: start: 20110616
  11. CARVEDILOL [Interacting]
     Active Substance: CARVEDILOL
     Dosage: 25 MILLIGRAM, QD
     Route: 065
     Dates: start: 20110616
  12. CARVEDILOL [Interacting]
     Active Substance: CARVEDILOL
     Dosage: 50 MILLIGRAM, QD
     Route: 065
     Dates: start: 20110616
  13. CARVEDILOL [Interacting]
     Active Substance: CARVEDILOL
     Dosage: 25 MILLIGRAM, QD
     Route: 065
     Dates: start: 20110616
  14. IVABRADINE HYDROCHLORIDE [Interacting]
     Active Substance: IVABRADINE HYDROCHLORIDE
     Indication: Angina pectoris
     Dosage: 10 MILLIGRAM, QD
     Route: 065
     Dates: start: 20150211
  15. IVABRADINE HYDROCHLORIDE [Interacting]
     Active Substance: IVABRADINE HYDROCHLORIDE
     Route: 065
  16. IVABRADINE HYDROCHLORIDE [Interacting]
     Active Substance: IVABRADINE HYDROCHLORIDE
     Dosage: 5 MILLIGRAM, QD
     Route: 065
     Dates: start: 20150211
  17. IVABRADINE HYDROCHLORIDE [Interacting]
     Active Substance: IVABRADINE HYDROCHLORIDE
     Route: 065
  18. FUROSEMIDE [Interacting]
     Active Substance: FUROSEMIDE
     Indication: Pulmonary oedema
     Dosage: 40 MILLIGRAM, QD
     Route: 048
     Dates: start: 20160402
  19. FUROSEMIDE [Interacting]
     Active Substance: FUROSEMIDE
     Indication: Left ventricular dysfunction
     Dosage: 40 MILLIGRAM, QD
     Route: 048
     Dates: start: 20160402
  20. FUROSEMIDE [Interacting]
     Active Substance: FUROSEMIDE
     Indication: Lung disorder
     Dosage: 80 MILLIGRAM, QD
     Route: 048
     Dates: start: 20160402
  21. FUROSEMIDE [Interacting]
     Active Substance: FUROSEMIDE
     Indication: Pleural effusion
     Dosage: 40 MILLIGRAM, QD
     Route: 048
     Dates: start: 20160402
  22. FUROSEMIDE [Interacting]
     Active Substance: FUROSEMIDE
     Indication: Pulmonary oedema
     Dosage: 40 MILLIGRAM, QD
     Route: 048
     Dates: start: 20160402
  23. FUROSEMIDE [Interacting]
     Active Substance: FUROSEMIDE
     Dosage: 40 MILLIGRAM, QD
     Route: 048
     Dates: start: 20160402
  24. BOCOCIZUMAB [Interacting]
     Active Substance: BOCOCIZUMAB
     Indication: Cardiovascular disorder
     Dosage: 50 MILLIGRAM, QD
     Route: 058
     Dates: start: 20110616
  25. BOCOCIZUMAB [Interacting]
     Active Substance: BOCOCIZUMAB
     Indication: Angina pectoris
     Route: 058
     Dates: start: 20150908, end: 20161101
  26. BOCOCIZUMAB [Interacting]
     Active Substance: BOCOCIZUMAB
     Route: 065
  27. BOCOCIZUMAB [Interacting]
     Active Substance: BOCOCIZUMAB
     Dosage: 50 MILLIGRAM EVERY 2 WEEKS (50 MG, QOW (50 MG, QD (25 MG, BID))
     Route: 058
     Dates: start: 20110616
  28. ISOSORBIDE MONONITRATE [Interacting]
     Active Substance: ISOSORBIDE MONONITRATE
     Indication: Angina pectoris
     Dosage: 10 MILLIGRAM, QD (NUMBER OF SEPARATE DOSES: 1)
     Route: 048
     Dates: start: 20160205
  29. IVABRADINE [Interacting]
     Active Substance: IVABRADINE
     Indication: Angina pectoris
     Dosage: 5 MILLIGRAM, BID (NUMBER OF SEPARATE DOSES: 2), CRESCENT PHARMA LIMITED
     Route: 065
     Dates: start: 20150211
  30. IVABRADINE [Interacting]
     Active Substance: IVABRADINE
     Dosage: 10 MG, QD ((5 MG, BID))
     Route: 065
  31. IVABRADINE [Interacting]
     Active Substance: IVABRADINE
     Dosage: 10 MG, QD ((5 MG, BID))
     Route: 065
  32. IVABRADINE [Interacting]
     Active Substance: IVABRADINE
     Dosage: 5 MILLIGRAM, QD
     Route: 065
     Dates: start: 20150211
  33. IVABRADINE [Interacting]
     Active Substance: IVABRADINE
     Dosage: 10 MG, QD ((5 MG, BID))
     Route: 065
     Dates: start: 20150211
  34. QUETIAPINE FUMARATE [Interacting]
     Active Substance: QUETIAPINE FUMARATE
     Indication: Depression
     Route: 048
     Dates: start: 20150826
  35. OMEPRAZOLE [Concomitant]
     Active Substance: OMEPRAZOLE
     Indication: Dyspepsia
     Route: 065
     Dates: start: 20140116
  36. ASPIRIN [Concomitant]
     Active Substance: ASPIRIN
     Indication: Cardiovascular disorder
     Route: 065
     Dates: start: 20130708
  37. ATORVASTATIN [Concomitant]
     Active Substance: ATORVASTATIN
     Indication: Cardiovascular disorder
     Route: 065
     Dates: start: 20130708
  38. NITROGLYCERIN [Concomitant]
     Active Substance: NITROGLYCERIN
     Indication: Pain
     Route: 065
     Dates: start: 20130902
  39. NITROGLYCERIN [Concomitant]
     Active Substance: NITROGLYCERIN
     Indication: Cardiovascular disorder
  40. ACETAMINOPHEN\CODEINE PHOSPHATE [Concomitant]
     Active Substance: ACETAMINOPHEN\CODEINE PHOSPHATE
     Indication: Pain in extremity
     Route: 065
     Dates: start: 20110616
  41. BETAMETHASONE DIPROPIONATE\CLOTRIMAZOLE [Concomitant]
     Active Substance: BETAMETHASONE DIPROPIONATE\CLOTRIMAZOLE
     Indication: Psoriasis
     Route: 065
     Dates: start: 20150626
  42. METHOTREXATE [Concomitant]
     Active Substance: METHOTREXATE
     Indication: Psoriasis
     Route: 065
     Dates: start: 20150727
  43. SERTRALINE HYDROCHLORIDE [Concomitant]
     Active Substance: SERTRALINE HYDROCHLORIDE
     Indication: Depression
     Route: 065
     Dates: start: 20110816
  44. SERTRALINE HYDROCHLORIDE [Concomitant]
     Active Substance: SERTRALINE HYDROCHLORIDE
     Indication: Ventricular dysfunction
     Route: 065
     Dates: start: 20110701
  45. SERTRALINE HYDROCHLORIDE [Concomitant]
     Active Substance: SERTRALINE HYDROCHLORIDE
     Route: 065
     Dates: start: 20160701
  46. ENTRESTO [Concomitant]
     Active Substance: SACUBITRIL\VALSARTAN
     Indication: Ventricular dysfunction
     Route: 065
     Dates: start: 20160701
  47. ENTRESTO [Concomitant]
     Active Substance: SACUBITRIL\VALSARTAN
     Route: 048
     Dates: start: 20160701
  48. ENTRESTO [Concomitant]
     Active Substance: SACUBITRIL\VALSARTAN
     Route: 065
     Dates: start: 20160601
  49. ACETAMINOPHEN [Concomitant]
     Active Substance: ACETAMINOPHEN
     Indication: Pain in extremity
     Route: 065
     Dates: start: 20110616
  50. FOLIC ACID [Concomitant]
     Active Substance: FOLIC ACID
     Indication: Anaemia
     Route: 065
     Dates: start: 20131211
  51. QUETIAPINE FUMARATE [Concomitant]
     Active Substance: QUETIAPINE FUMARATE
     Indication: Depression
     Route: 065
     Dates: start: 20150826
  52. CODEINE PHOSPHATE [Concomitant]
     Active Substance: CODEINE PHOSPHATE
     Indication: Product used for unknown indication
     Route: 005
  53. CODEINE PHOSPHATE [Concomitant]
     Active Substance: CODEINE PHOSPHATE
     Route: 065
     Dates: start: 20110616
  54. BETAMETHASONE [Concomitant]
     Active Substance: BETAMETHASONE
     Indication: Psoriasis
     Route: 065
  55. ACETAMINOPHEN [Concomitant]
     Active Substance: ACETAMINOPHEN
     Indication: Pain in extremity
     Route: 065
     Dates: start: 20110616
  56. ACETAMINOPHEN [Concomitant]
     Active Substance: ACETAMINOPHEN
     Indication: Pain in extremity
     Route: 065
     Dates: start: 20110616
  57. SACUBITRIL [Concomitant]
     Active Substance: SACUBITRIL
     Indication: Left ventricular dysfunction
     Route: 048
     Dates: start: 20160601
  58. SACUBITRIL [Concomitant]
     Active Substance: SACUBITRIL
     Route: 048
     Dates: start: 20160701
  59. SACUBITRIL [Concomitant]
     Active Substance: SACUBITRIL
     Route: 048
     Dates: start: 20160601
  60. BETAMETHASONE DIPROPIONATE [Concomitant]
     Active Substance: BETAMETHASONE DIPROPIONATE
     Indication: Psoriasis
     Route: 065
     Dates: start: 20150626

REACTIONS (12)
  - Cardiac failure [Unknown]
  - Psoriasis [Unknown]
  - Fluid retention [Unknown]
  - Hypotension [Recovered/Resolved]
  - Pulmonary oedema [Unknown]
  - Presyncope [Unknown]
  - Ventricular dysfunction [Unknown]
  - Drug interaction [Recovered/Resolved]
  - Angina pectoris [Unknown]
  - Contusion [Recovered/Resolved]
  - Anaemia [Unknown]
  - Oedema peripheral [Not Recovered/Not Resolved]

NARRATIVE: CASE EVENT DATE: 20130919
